FAERS Safety Report 17239211 (Version 3)
Quarter: 2022Q1

REPORT INFORMATION
  Report Type: Spontaneous
  Country: US (occurrence: US)
  Receive Date: 20200106
  Receipt Date: 20220105
  Transmission Date: 20220423
  Serious: No
  Sender: FDA-Public Use
  Company Number: US-ABBVIE-19K-163-2790343-00

PATIENT
  Age: 47 Year
  Sex: Male

DRUGS (4)
  1. VENCLEXTA [Suspect]
     Active Substance: VENETOCLAX
     Indication: Chronic lymphocytic leukaemia
     Route: 048
     Dates: start: 20180524
  2. IMBRUVICA [Suspect]
     Active Substance: IBRUTINIB
     Indication: Chronic lymphocytic leukaemia
     Route: 048
     Dates: start: 20180511
  3. IMBRUVICA [Suspect]
     Active Substance: IBRUTINIB
     Route: 048
     Dates: start: 20180519
  4. IMBRUVICA [Suspect]
     Active Substance: IBRUTINIB
     Indication: Chronic lymphocytic leukaemia
     Route: 048
     Dates: start: 20150725, end: 20180518

REACTIONS (18)
  - Scratch [Unknown]
  - Skin infection [Unknown]
  - Impaired healing [Unknown]
  - Skin abrasion [Unknown]
  - Skin wound [Unknown]
  - Upper respiratory tract infection [Unknown]
  - Impaired healing [Unknown]
  - Skin ulcer [Unknown]
  - Diarrhoea [Unknown]
  - Fatigue [Unknown]
  - White blood cell count increased [Unknown]
  - Lymphadenopathy [Unknown]
  - Splenomegaly [Unknown]
  - Nodule [Unknown]
  - Skin disorder [Unknown]
  - Platelet count decreased [Unknown]
  - Acne [Recovering/Resolving]
  - Dysphonia [Unknown]

NARRATIVE: CASE EVENT DATE: 20181001
